FAERS Safety Report 17101853 (Version 1)
Quarter: 2019Q4

REPORT INFORMATION
  Report Type: Spontaneous
  Country: FR (occurrence: FR)
  Receive Date: 20191202
  Receipt Date: 20191202
  Transmission Date: 20200122
  Serious: Yes (Other)
  Sender: FDA-Public Use
  Company Number: FR-ELI_LILLY_AND_COMPANY-FR201911010477

PATIENT
  Sex: Male
  Weight: 88 kg

DRUGS (15)
  1. ROACTEMRA [Suspect]
     Active Substance: TOCILIZUMAB
     Indication: RHEUMATOID ARTHRITIS
     Dosage: UNK, UNKNOWN
     Route: 058
     Dates: start: 201801, end: 201804
  2. KARDEGIC [Concomitant]
     Active Substance: ASPIRIN DL-LYSINE
  3. ESOMEPRAZOLE. [Concomitant]
     Active Substance: ESOMEPRAZOLE MAGNESIUM
  4. NOVATREX (METHOTREXATE) [Suspect]
     Active Substance: METHOTREXATE SODIUM
     Indication: RHEUMATOID ARTHRITIS
     Dosage: UNK, UNKNOWN
     Route: 048
     Dates: start: 2006, end: 200612
  5. ARAVA [Suspect]
     Active Substance: LEFLUNOMIDE
     Indication: RHEUMATOID ARTHRITIS
     Dosage: UNK UNK, UNKNOWN
     Route: 048
     Dates: start: 200612, end: 200703
  6. MABTHERA [Suspect]
     Active Substance: RITUXIMAB
     Indication: RHEUMATOID ARTHRITIS
     Dosage: UNK, UNKNOWN
     Route: 058
     Dates: start: 200706, end: 201212
  7. NICORANDIL [Concomitant]
     Active Substance: NICORANDIL
  8. FIXICAL [Concomitant]
     Active Substance: CALCIUM CARBONATE
  9. FLODIL [FELODIPINE] [Concomitant]
     Active Substance: FELODIPINE
  10. CORTANCYL [Concomitant]
     Active Substance: PREDNISONE
  11. ORENCIA [Suspect]
     Active Substance: ABATACEPT
     Indication: RHEUMATOID ARTHRITIS
     Dosage: UNK, UNKNOWN
     Route: 042
     Dates: start: 201806, end: 201810
  12. DIFFU K [Concomitant]
     Active Substance: POTASSIUM CHLORIDE
  13. FENOFIBRATE. [Concomitant]
     Active Substance: FENOFIBRATE
  14. OLUMIANT [Suspect]
     Active Substance: BARICITINIB
     Indication: RHEUMATOID ARTHRITIS
     Dosage: UNK, UNKNOWN
     Route: 048
     Dates: start: 201811, end: 201905
  15. CIMZIA [Suspect]
     Active Substance: CERTOLIZUMAB PEGOL
     Indication: RHEUMATOID ARTHRITIS
     Dosage: UNK UNK, UNKNOWN
     Route: 048
     Dates: start: 201305, end: 201310

REACTIONS (2)
  - Condition aggravated [Not Recovered/Not Resolved]
  - Squamous cell carcinoma of lung [Not Recovered/Not Resolved]

NARRATIVE: CASE EVENT DATE: 201905
